FAERS Safety Report 24269857 (Version 1)
Quarter: 2024Q3

REPORT INFORMATION
  Report Type: Spontaneous
  Country: US (occurrence: None)
  Receive Date: 20240830
  Receipt Date: 20240830
  Transmission Date: 20241016
  Serious: Yes (Hospitalization)
  Sender: Public
  Company Number: None

PATIENT
  Sex: Female

DRUGS (4)
  1. EPOPROSTENOL [Suspect]
     Active Substance: EPOPROSTENOL
     Indication: Pulmonary arterial hypertension
     Route: 042
     Dates: start: 202408
  2. SOD CHLOR SDV (50ML/FTV) [Concomitant]
  3. PUMP CADD LEGACY [Concomitant]
  4. AMBRISENTAN [Concomitant]

REACTIONS (3)
  - Dyspnoea [None]
  - Pain in jaw [None]
  - Nausea [None]
